FAERS Safety Report 13273455 (Version 2)
Quarter: 2017Q2

REPORT INFORMATION
  Report Type: Spontaneous
  Country: US (occurrence: US)
  Receive Date: 20170227
  Receipt Date: 20170428
  Transmission Date: 20170830
  Serious: Yes (Hospitalization, Disabling, Other)
  Sender: FDA-Public Use
  Company Number: US-009507513-1702USA011512

PATIENT
  Sex: Male
  Weight: 120.18 kg

DRUGS (2)
  1. VICTOZA [Suspect]
     Active Substance: LIRAGLUTIDE
     Indication: TYPE 2 DIABETES MELLITUS
     Dosage: 18MG/3ML; 1.8 MG QD
     Route: 058
     Dates: start: 20150105, end: 201502
  2. JANUVIA [Suspect]
     Active Substance: SITAGLIPTIN PHOSPHATE
     Indication: TYPE 2 DIABETES MELLITUS
     Dosage: UNK UNK, UNKNOWN
     Route: 048
     Dates: start: 200611, end: 20150105

REACTIONS (21)
  - Hyperlipidaemia [Unknown]
  - Adenocarcinoma pancreas [Unknown]
  - Metastases to liver [Unknown]
  - Metastases to lung [Unknown]
  - Respiratory disorder [Unknown]
  - Osteoarthritis [Unknown]
  - Cardiac failure congestive [Unknown]
  - Pain [Unknown]
  - Haemorrhoids [Unknown]
  - Cardiomyopathy [Unknown]
  - Abdominal abscess [Unknown]
  - Back pain [Unknown]
  - Hypertension [Unknown]
  - Diverticulitis [Unknown]
  - Depression [Unknown]
  - Gastric ulcer perforation [Unknown]
  - Blood cholesterol increased [Unknown]
  - Bronchitis [Unknown]
  - Pneumonia [Unknown]
  - Gastrooesophageal reflux disease [Unknown]
  - Anaemia of chronic disease [Unknown]

NARRATIVE: CASE EVENT DATE: 2006
